FAERS Safety Report 22378123 (Version 2)
Quarter: 2023Q2

REPORT INFORMATION
  Report Type: Spontaneous
  Country: US (occurrence: US)
  Receive Date: 20230529
  Receipt Date: 20230602
  Transmission Date: 20230722
  Serious: No
  Sender: FDA-Public Use
  Company Number: US-SANOFI-01627346

PATIENT
  Age: 52 Year
  Sex: Male

DRUGS (1)
  1. LANTUS SOLOSTAR [Suspect]
     Active Substance: INSULIN GLARGINE
     Indication: Type 2 diabetes mellitus
     Dosage: 70 U, QD
     Dates: start: 2022

REACTIONS (4)
  - Skin disorder [Unknown]
  - Glycosylated haemoglobin abnormal [Unknown]
  - Device issue [Unknown]
  - Injection site mass [Unknown]
